FAERS Safety Report 20169652 (Version 1)
Quarter: 2021Q4

REPORT INFORMATION
  Report Type: Spontaneous
  Country: US (occurrence: US)
  Receive Date: 20211210
  Receipt Date: 20211210
  Transmission Date: 20220303
  Serious: Yes (Other)
  Sender: FDA-Public Use
  Company Number: US-AMGEN-USASP2021192881

PATIENT
  Age: 73 Year
  Sex: Female

DRUGS (3)
  1. XGEVA [Suspect]
     Active Substance: DENOSUMAB
     Indication: Prophylaxis
     Dosage: UNK
     Route: 065
     Dates: start: 201805
  2. IBRANCE [Concomitant]
     Active Substance: PALBOCICLIB
     Indication: Breast cancer recurrent
     Route: 065
  3. FEMARA [Concomitant]
     Active Substance: LETROZOLE
     Indication: Breast cancer recurrent
     Route: 065

REACTIONS (2)
  - Osteonecrosis of jaw [Unknown]
  - Dental prosthesis placement [Unknown]

NARRATIVE: CASE EVENT DATE: 20200801
